FAERS Safety Report 7204087-2 (Version None)
Quarter: 2010Q4

REPORT INFORMATION
  Report Type: 
  Country: None (occurrence: None)
  Receive Date: 20101220
  Receipt Date: 20101210
  Transmission Date: 20110411
  Serious: Yes (Hospitalization, Other)
  Sender: FDA-Public Use
  Company Number: 110290

PATIENT
  Age: 23 Year
  Sex: Female

DRUGS (1)
  1. KETAMINE HCL [Suspect]
     Indication: PRODUCT USED FOR UNKNOWN INDICATION

REACTIONS (5)
  - CYSTITIS [None]
  - DRUG ABUSE [None]
  - MICTURITION URGENCY [None]
  - POLLAKIURIA [None]
  - TREATMENT FAILURE [None]
